FAERS Safety Report 24692747 (Version 1)
Quarter: 2024Q4

REPORT INFORMATION
  Report Type: Spontaneous
  Country: PL (occurrence: PL)
  Receive Date: 20241203
  Receipt Date: 20241203
  Transmission Date: 20250114
  Serious: Yes (Hospitalization, Other)
  Sender: NOVARTIS
  Company Number: PL-002147023-NVSC2024PL228477

PATIENT
  Age: 70 Year
  Sex: Male
  Weight: 90 kg

DRUGS (6)
  1. ENTRESTO [Suspect]
     Active Substance: SACUBITRIL\VALSARTAN
     Indication: Cardiac failure
     Dosage: UNK (2 X 24/26 MG)
     Route: 065
     Dates: start: 201712
  2. ENTRESTO [Suspect]
     Active Substance: SACUBITRIL\VALSARTAN
     Dosage: UNK (2X 97/103 MG)
     Route: 065
  3. BISOPROLOL [Concomitant]
     Active Substance: BISOPROLOL
     Indication: Cardiac failure
     Dosage: 3.75 MG (X1)
     Route: 065
     Dates: start: 201803
  4. EPLERENONE [Concomitant]
     Active Substance: EPLERENONE
     Indication: Cardiac failure
     Dosage: 25 MG (X1)
     Route: 065
     Dates: start: 201803
  5. IVABRADINE [Concomitant]
     Active Substance: IVABRADINE
     Indication: Cardiac failure
     Dosage: 5 MG (X2)
     Route: 065
     Dates: start: 201803
  6. RIVAROXABAN [Concomitant]
     Active Substance: RIVAROXABAN
     Indication: Prophylaxis
     Dosage: 20 MG (X1)
     Route: 065
     Dates: start: 201809

REACTIONS (12)
  - Cardiac failure chronic [Unknown]
  - Dilated cardiomyopathy [Unknown]
  - Palpitations [Unknown]
  - Dyspnoea exertional [Unknown]
  - Atrial fibrillation [Unknown]
  - Atrial flutter [Unknown]
  - Hypotension [Unknown]
  - Hypotonia [Unknown]
  - Ejection fraction decreased [Unknown]
  - Supraventricular tachycardia [Unknown]
  - QRS axis abnormal [Unknown]
  - Defect conduction intraventricular [Unknown]

NARRATIVE: CASE EVENT DATE: 20180901
